FAERS Safety Report 11731199 (Version 1)
Quarter: 2015Q4

REPORT INFORMATION
  Report Type: Spontaneous
  Country: US (occurrence: US)
  Receive Date: 20151110
  Receipt Date: 20151110
  Transmission Date: 20160304
  Serious: No
  Sender: FDA-Public Use
  Company Number: US-ELI_LILLY_AND_COMPANY-US201203000967

PATIENT
  Age: 70 Year
  Sex: Female

DRUGS (13)
  1. FORTEO [Suspect]
     Active Substance: TERIPARATIDE
     Indication: OSTEOPOROSIS
     Dosage: 20 UG, QD
     Dates: start: 20110510
  2. PREDNISONE. [Concomitant]
     Active Substance: PREDNISONE
  3. ALPRAZOLAM. [Concomitant]
     Active Substance: ALPRAZOLAM
  4. DOXYCYCLINE. [Concomitant]
     Active Substance: DOXYCYCLINE
  5. SINGULAIR [Concomitant]
     Active Substance: MONTELUKAST SODIUM
  6. ADVAIR DISKUS [Concomitant]
     Active Substance: FLUTICASONE PROPIONATE\SALMETEROL XINAFOATE
  7. TRAZODONE [Concomitant]
     Active Substance: TRAZODONE HYDROCHLORIDE
  8. ALBUTEROL. [Concomitant]
     Active Substance: ALBUTEROL
  9. ALBUTEROL. [Concomitant]
     Active Substance: ALBUTEROL
  10. LISINOPRIL. [Concomitant]
     Active Substance: LISINOPRIL
  11. THEOPHYLLINE [Concomitant]
     Active Substance: THEOPHYLLINE ANHYDROUS
  12. SPIRIVA [Concomitant]
     Active Substance: TIOTROPIUM BROMIDE MONOHYDRATE
  13. CYCLOBENZAPRINE [Concomitant]
     Active Substance: CYCLOBENZAPRINE

REACTIONS (3)
  - Gastrooesophageal reflux disease [Unknown]
  - Anaemia [Unknown]
  - Red blood cell sedimentation rate increased [Not Recovered/Not Resolved]
